FAERS Safety Report 8439517-1 (Version None)
Quarter: 2012Q2

REPORT INFORMATION
  Report Type: 
  Country: None (occurrence: None)
  Receive Date: 20120615
  Receipt Date: 20120608
  Transmission Date: 20120825
  Serious: Yes (Other)
  Sender: FDA-Public Use
  Company Number: FR-PFIZER INC-2012137817

PATIENT
  Age: 25 Year
  Sex: Male

DRUGS (3)
  1. VFEND [Suspect]
     Dosage: 150 MG, 2X/DAY
     Route: 042
     Dates: start: 20120322
  2. VFEND [Suspect]
     Indication: BRONCHOPULMONARY ASPERGILLOSIS
     Dosage: 200 MG, 2X/DAY
     Route: 042
     Dates: start: 20120317, end: 20120321
  3. CICLOSPORIN [Concomitant]
     Indication: GRAFT VERSUS HOST DISEASE

REACTIONS (3)
  - DIZZINESS [None]
  - DYSARTHRIA [None]
  - TREMOR [None]
